FAERS Safety Report 9233379 (Version 1)
Quarter: 2013Q2

REPORT INFORMATION
  Report Type: Spontaneous
  Country: US (occurrence: None)
  Receive Date: 20130415
  Receipt Date: 20130415
  Transmission Date: 20140414
  Serious: Yes (Other)
  Sender: FDA-Public Use
  Company Number: None

PATIENT
  Age: 59 Year
  Sex: Female
  Weight: 90.72 kg

DRUGS (1)
  1. REQUIP [Suspect]
     Indication: RESTLESS LEGS SYNDROME
     Dosage: .5 - 1MG, EVERY EVENING, PO
     Route: 048
     Dates: start: 20050102, end: 20130323

REACTIONS (2)
  - Gastrooesophageal reflux disease [None]
  - Sleep disorder [None]
